FAERS Safety Report 7806105-7 (Version None)
Quarter: 2011Q4

REPORT INFORMATION
  Report Type: 
  Country: None (occurrence: None)
  Receive Date: 20111011
  Receipt Date: 20110930
  Transmission Date: 20120403
  Serious: Yes (Other)
  Sender: FDA-Public Use
  Company Number: US-US-EMD SERONO, INC.-7084803

PATIENT
  Sex: Female

DRUGS (5)
  1. REBIF [Suspect]
     Indication: RELAPSING-REMITTING MULTIPLE SCLEROSIS
     Route: 058
     Dates: start: 20101101, end: 20110907
  2. VESICARE [Concomitant]
     Indication: URINARY INCONTINENCE
  3. AMANTIDINE [Concomitant]
  4. CELEXA [Concomitant]
  5. NEURONTIN [Concomitant]
     Indication: NECK PAIN

REACTIONS (4)
  - COLITIS ULCERATIVE [None]
  - PAIN IN EXTREMITY [None]
  - MALAISE [None]
  - BLADDER DISORDER [None]
